FAERS Safety Report 13326770 (Version 2)
Quarter: 2017Q3

REPORT INFORMATION
  Report Type: Spontaneous
  Country: IT (occurrence: IT)
  Receive Date: 20170312
  Receipt Date: 20170720
  Transmission Date: 20171127
  Serious: Yes (Hospitalization)
  Sender: FDA-Public Use
  Company Number: IT-TEVA-743932ACC

PATIENT
  Age: 57 Year
  Sex: Female

DRUGS (4)
  1. FLUOROURACIL. [Concomitant]
     Active Substance: FLUOROURACIL
     Indication: ADENOCARCINOMA OF COLON
     Dates: start: 20150812
  2. CETUXIMAB. [Concomitant]
     Active Substance: CETUXIMAB
     Indication: ADENOCARCINOMA OF COLON
     Dates: start: 20150909
  3. OXALIPLATIN. [Suspect]
     Active Substance: OXALIPLATIN
     Indication: ADENOCARCINOMA OF COLON
     Route: 041
     Dates: start: 20150812, end: 20150923
  4. FOLINIC ACID [Concomitant]
     Active Substance: LEUCOVORIN
     Indication: ADENOCARCINOMA OF COLON
     Dates: start: 20150812

REACTIONS (11)
  - Haemolytic uraemic syndrome [Recovered/Resolved]
  - Abdominal pain [Recovering/Resolving]
  - Asthenia [Unknown]
  - Confusional state [Unknown]
  - Haemolytic anaemia [Recovering/Resolving]
  - Hyperbilirubinaemia [Recovering/Resolving]
  - Abdominal distension [Unknown]
  - Condition aggravated [Unknown]
  - Renal failure [Recovering/Resolving]
  - Pulmonary oedema [Recovering/Resolving]
  - Hypotension [Unknown]
